FAERS Safety Report 9322245 (Version 1)
Quarter: 2013Q2

REPORT INFORMATION
  Report Type: Spontaneous
  Country: IN (occurrence: None)
  Receive Date: 20130529
  Receipt Date: 20130529
  Transmission Date: 20140414
  Serious: Yes (Hospitalization)
  Sender: FDA-Public Use
  Company Number: FK201301685

PATIENT
  Age: 48 Year
  Sex: Male

DRUGS (1)
  1. METHOTREXATE [Suspect]
     Indication: PSORIASIS
     Dosage: ACCIDENTALLY INGESTED 3

REACTIONS (16)
  - Vomiting [None]
  - Skin erosion [None]
  - Chromaturia [None]
  - Urine output decreased [None]
  - Respiratory distress [None]
  - Tachycardia [None]
  - Tachypnoea [None]
  - Jaundice [None]
  - Pancytopenia [None]
  - Hypoxia [None]
  - Respiratory alkalosis [None]
  - Multi-organ failure [None]
  - Pneumonitis [None]
  - Toxicity to various agents [None]
  - Incorrect dose administered [None]
  - Nausea [None]
